FAERS Safety Report 7902847-3 (Version None)
Quarter: 2011Q4

REPORT INFORMATION
  Report Type: 
  Country: None (occurrence: None)
  Receive Date: 20111104
  Receipt Date: 20111021
  Transmission Date: 20120403
  Serious: Yes (Other)
  Sender: FDA-Public Use
  Company Number: 2011SP049433

PATIENT
  Age: 42 Year
  Sex: Female
  Weight: 58 kg

DRUGS (4)
  1. LEVOTHYROXINE SODIUM [Concomitant]
  2. CERAZETTE (DESOGESTREL /00754001/) [Suspect]
     Indication: CONTRACEPTION
     Dosage: QD;PO ; QD;PO
     Route: 048
     Dates: start: 20101201, end: 20110801
  3. CERAZETTE (DESOGESTREL /00754001/) [Suspect]
     Indication: CONTRACEPTION
     Dosage: QD;PO ; QD;PO
     Route: 048
     Dates: start: 20111018
  4. CLONAZEPAM [Concomitant]

REACTIONS (5)
  - LEIOMYOMA [None]
  - DRUG DOSE OMISSION [None]
  - AMENORRHOEA [None]
  - HYPOMENORRHOEA [None]
  - BREAST SWELLING [None]
